FAERS Safety Report 8550782-2 (Version None)
Quarter: 2012Q3

REPORT INFORMATION
  Report Type: 
  Country: None (occurrence: None)
  Receive Date: 20120730
  Receipt Date: 20110725
  Transmission Date: 20120928
  Serious: No
  Sender: FDA-Public Use
  Company Number: US-ALLERGAN-1110046US

PATIENT
  Sex: Female

DRUGS (2)
  1. PROPYLENE GLYCOL [Concomitant]
     Dosage: UNK
     Route: 047
  2. LATISSE [Suspect]
     Indication: GROWTH OF EYELASHES
     Dosage: UNK
     Dates: start: 20110609

REACTIONS (1)
  - EYELIDS PRURITUS [None]
